FAERS Safety Report 10008117 (Version 2)
Quarter: 2014Q1

REPORT INFORMATION
  Report Type: Spontaneous
  Country: US (occurrence: US)
  Receive Date: 20140313
  Receipt Date: 20140313
  Transmission Date: 20141002
  Serious: No
  Sender: FDA-Public Use
  Company Number: US-GILEAD-2013-0071629

PATIENT
  Sex: Female

DRUGS (5)
  1. LETAIRIS [Suspect]
     Indication: PULMONARY ARTERIAL HYPERTENSION
     Dosage: 10 MG, QD
     Route: 048
     Dates: start: 20130219
  2. LETAIRIS [Suspect]
     Indication: SLEEP APNOEA SYNDROME
  3. ADCIRCA [Concomitant]
  4. HYDROCHLOROTHIAZIDE [Concomitant]
  5. DILTIAZEM [Concomitant]

REACTIONS (4)
  - Blood pressure decreased [Unknown]
  - Wheezing [Unknown]
  - Dyspnoea [Unknown]
  - Oedema peripheral [Unknown]
